FAERS Safety Report 9131672 (Version 1)
Quarter: 2013Q1

REPORT INFORMATION
  Report Type: Spontaneous
  Country: US (occurrence: US)
  Receive Date: 20130301
  Receipt Date: 20130301
  Transmission Date: 20140127
  Serious: Yes (Other)
  Sender: FDA-Public Use
  Company Number: US-MYLANLABS-2012S1010747

PATIENT
  Sex: Male

DRUGS (8)
  1. AMNESTEEM CAPSULES [Suspect]
     Route: 048
     Dates: start: 20050505, end: 20050605
  2. AMNESTEEM CAPSULES [Suspect]
     Route: 048
     Dates: start: 20050726, end: 20050826
  3. AMNESTEEM CAPSULES [Suspect]
     Route: 048
     Dates: start: 20060721, end: 20060821
  4. AMNESTEEM CAPSULES [Suspect]
     Route: 048
     Dates: start: 20100427, end: 20100527
  5. AMNESTEEM CAPSULES [Suspect]
     Route: 048
     Dates: start: 20100702, end: 20100902
  6. AMNESTEEM CAPSULES [Suspect]
     Route: 048
     Dates: start: 20110106, end: 20110204
  7. AMNESTEEM CAPSULES [Suspect]
     Route: 048
     Dates: start: 20110304, end: 20110404
  8. SOTRET [Suspect]
     Route: 048
     Dates: start: 20061229, end: 20070306

REACTIONS (1)
  - Inflammatory bowel disease [Not Recovered/Not Resolved]
